FAERS Safety Report 5052539-6 (Version None)
Quarter: 2006Q3

REPORT INFORMATION
  Report Type: 
  Country: None (occurrence: None)
  Receive Date: 20060717
  Receipt Date: 20060627
  Transmission Date: 20061208
  Serious: No
  Sender: FDA-Public Use
  Company Number: PHBS2006CL09616

PATIENT
  Sex: Female

DRUGS (1)
  1. LEPONEX [Suspect]
     Route: 048

REACTIONS (5)
  - ABDOMINAL PAIN UPPER [None]
  - DIZZINESS [None]
  - DRUG DISPENSING ERROR [None]
  - FATIGUE [None]
  - SOMNOLENCE [None]
